FAERS Safety Report 9788464 (Version 1)
Quarter: 2013Q4

REPORT INFORMATION
  Report Type: Spontaneous
  Country: FR (occurrence: FR)
  Receive Date: 20131230
  Receipt Date: 20131230
  Transmission Date: 20140711
  Serious: Yes (Life-Threatening, Hospitalization, Other)
  Sender: FDA-Public Use
  Company Number: FR-PFIZER INC-2013368196

PATIENT
  Age: 46 Year
  Sex: Male

DRUGS (3)
  1. SOLU-MEDROL [Suspect]
     Dosage: UNK
     Route: 042
     Dates: start: 20100902, end: 20130402
  2. REMICADE [Suspect]
     Indication: CROHN^S DISEASE
     Dosage: 19 CYCLES
     Route: 041
     Dates: start: 20100902, end: 20130402
  3. PENTASA [Suspect]
     Dosage: UNK
     Dates: start: 1995

REACTIONS (7)
  - Disseminated tuberculosis [Recovering/Resolving]
  - Tuberculosis liver [Recovered/Resolved]
  - Splenic infarction [Unknown]
  - Peripheral ischaemia [Unknown]
  - Renal infarct [Unknown]
  - Mesenteric artery thrombosis [Unknown]
  - Pulmonary embolism [Unknown]
